FAERS Safety Report 20924126 (Version 1)
Quarter: 2022Q2

REPORT INFORMATION
  Report Type: Spontaneous
  Country: ES (occurrence: ES)
  Receive Date: 20220607
  Receipt Date: 20220607
  Transmission Date: 20220721
  Serious: Yes (Other)
  Sender: FDA-Public Use
  Company Number: ES-SUN PHARMACEUTICAL INDUSTRIES LTD-2022R1-325737

PATIENT
  Age: 65 Year
  Sex: Female
  Weight: 72.6 kg

DRUGS (11)
  1. SPIRONOLACTONE [Interacting]
     Active Substance: SPIRONOLACTONE
     Dosage: 50 MG
     Route: 065
  2. ALDACTONE [Interacting]
     Active Substance: SPIRONOLACTONE
     Indication: Hypertension
     Dosage: 25 MG, 2X/DAY (2 IN 1 D: 1-0-1)
     Route: 065
  3. AMLODIPINE BESYLATE\HYDROCHLOROTHIAZIDE\OLMESARTAN MEDOXOMIL [Interacting]
     Active Substance: AMLODIPINE BESYLATE\HYDROCHLOROTHIAZIDE\OLMESARTAN MEDOXOMIL
     Indication: Hypertension
     Dosage: 40/10/25 MG, QD (1 IN 1 DAY: 1-0-0)
     Route: 048
  4. AMLODIPINE BESYLATE\HYDROCHLOROTHIAZIDE\OLMESARTAN MEDOXOMIL [Interacting]
     Active Substance: AMLODIPINE BESYLATE\HYDROCHLOROTHIAZIDE\OLMESARTAN MEDOXOMIL
     Dosage: 40/5/12.5 MG (REDUCED DOSE)
     Route: 048
  5. NAPROXEN SODIUM [Interacting]
     Active Substance: NAPROXEN SODIUM
     Indication: Arthralgia
     Dosage: 550 MG, 2X/DAY (2 IN 1 DAY: 1-0-1)
  6. FOSFOCINA [FOSFOMYCIN] [Concomitant]
     Indication: Urinary tract infection
     Dosage: 500 MG, TID (3 IN 1 DAY: 1-1-1)
     Route: 065
  7. DIAZEPAN PRODES [Concomitant]
     Indication: Anxiety
     Dosage: 5 MG, AS NEEDED (0-0-1)
     Route: 065
  8. ARB [ACETYLCYSTEINE] [Concomitant]
     Dosage: UNK
  9. OMEPRAZOL CINFA [Concomitant]
     Indication: Prophylaxis
     Dosage: 20 MG, DAILY (1-0-0)
  10. LYRICA [Concomitant]
     Active Substance: PREGABALIN
     Indication: Neuralgia
     Dosage: 75 MG, BID (2 IN 1 DAY: 1-0-1)
     Route: 065
  11. GELOTRADOL [Concomitant]
     Indication: Neuralgia
     Dosage: 150 MG, QD (1 IN DAY: 0-0-1)
     Route: 065

REACTIONS (11)
  - Drug interaction [Unknown]
  - Dyspepsia [Recovered/Resolved]
  - Weight decreased [Recovered/Resolved]
  - Diarrhoea [Recovered/Resolved]
  - Dizziness [Recovered/Resolved]
  - Underdose [Unknown]
  - Wrong technique in product usage process [Unknown]
  - Intentional product misuse [Unknown]
  - Drug ineffective [Unknown]
  - Asthenia [Recovered/Resolved]
  - Illness [Recovered/Resolved]
